FAERS Safety Report 6643468-2 (Version None)
Quarter: 2010Q1

REPORT INFORMATION
  Report Type: 
  Country: None (occurrence: None)
  Receive Date: 20100319
  Receipt Date: 20100308
  Transmission Date: 20100710
  Serious: Yes (Death)
  Sender: FDA-Public Use
  Company Number: US-WATSON-2010-02957

PATIENT
  Age: 49 Year
  Sex: Female

DRUGS (2)
  1. FORTAMET [Suspect]
     Indication: DIABETES MELLITUS
     Dosage: 500 MG X 60 TABLETS
     Route: 048
  2. LISINOPRIL/HYDROCHLOROTHIAZIDE 20/12.5 (WATSON LABORATORIES) [Suspect]
     Indication: HYPERTENSION
     Dosage: 20/12.5 MG X 20-25 TABLETS
     Route: 048

REACTIONS (4)
  - ELECTROMECHANICAL DISSOCIATION [None]
  - INTENTIONAL OVERDOSE [None]
  - LACTIC ACIDOSIS [None]
  - RENAL FAILURE ACUTE [None]
